FAERS Safety Report 7296291-2 (Version None)
Quarter: 2011Q1

REPORT INFORMATION
  Report Type: 
  Country: None (occurrence: None)
  Receive Date: 20110216
  Receipt Date: 20110204
  Transmission Date: 20110831
  Serious: Yes (Hospitalization)
  Sender: FDA-Public Use
  Company Number: US-ELI_LILLY_AND_COMPANY-US201102003691

PATIENT
  Sex: Female
  Weight: 56.689 kg

DRUGS (6)
  1. PRASUGREL HYDROCHLORIDE [Suspect]
     Indication: ACUTE CORONARY SYNDROME
     Dosage: 10 MG, DAILY (1/D)
     Route: 048
     Dates: start: 20100811
  2. ASPIRIN [Concomitant]
     Dosage: 325 MG, DAILY (1/D)
     Dates: start: 20100811
  3. ALTACE [Concomitant]
     Indication: HYPERTENSION
     Dosage: 5 MG, DAILY (1/D)
     Route: 048
     Dates: start: 20100809, end: 20100810
  4. ASPIRIN [Concomitant]
     Indication: ANTIPLATELET THERAPY
     Dosage: 81 MG, DAILY (1/D)
     Route: 048
     Dates: start: 20100809, end: 20100810
  5. ZOCOR [Concomitant]
     Dosage: 20 MG, DAILY (1/D)
     Route: 048
     Dates: start: 20100810, end: 20100811
  6. ZOCOR [Concomitant]
     Indication: HYPERLIPIDAEMIA
     Dosage: 40 MG, DAILY (1/D)
     Route: 048
     Dates: start: 20100809, end: 20100810

REACTIONS (1)
  - ANGINA PECTORIS [None]
